FAERS Safety Report 4389464-X (Version None)
Quarter: 2004Q2

REPORT INFORMATION
  Report Type: 
  Country: None (occurrence: None)
  Receive Date: 20040628
  Receipt Date: 20040616
  Transmission Date: 20050107
  Serious: Yes (Hospitalization)
  Sender: FDA-Public Use
  Company Number: US-JNJFOC-20040604581

PATIENT
  Sex: Female

DRUGS (1)
  1. DURAGESIC [Suspect]
     Dosage: 75 UG/HR, TRANSDERMAL
     Route: 062

REACTIONS (4)
  - FEELING COLD [None]
  - LOSS OF CONSCIOUSNESS [None]
  - OVERDOSE [None]
  - PULSE ABSENT [None]
